FAERS Safety Report 5206376-X (Version None)
Quarter: 2007Q1

REPORT INFORMATION
  Report Type: 
  Country: None (occurrence: None)
  Receive Date: 20070111
  Receipt Date: 20061211
  Transmission Date: 20070707
  Serious: Yes (Other)
  Sender: FDA-Public Use
  Company Number: US-PFIZER INC-2006072145

PATIENT
  Sex: Male

DRUGS (3)
  1. BEXTRA [Suspect]
     Indication: BACK PAIN
     Route: 048
  2. VOLTAREN [Concomitant]
     Route: 048
  3. PROZAC [Concomitant]
     Route: 048

REACTIONS (2)
  - DERMATITIS BULLOUS [None]
  - STEVENS-JOHNSON SYNDROME [None]
